FAERS Safety Report 9917234 (Version 5)
Quarter: 2014Q2

REPORT INFORMATION
  Report Type: Spontaneous
  Country: CA (occurrence: CA)
  Receive Date: 20140221
  Receipt Date: 20140507
  Transmission Date: 20141212
  Serious: Yes (Other)
  Sender: FDA-Public Use
  Company Number: CA-AMGEN-CANSP2014011196

PATIENT
  Age: 58 Year
  Sex: Female

DRUGS (15)
  1. ARANESP [Suspect]
     Indication: ANAEMIA OF CHRONIC DISEASE
     Dosage: 20 MUG, QWK
     Route: 042
     Dates: end: 20140212
  2. NITROLINGUAL [Concomitant]
     Indication: INFECTION
     Dosage: 0.4 MG, AS NECESSARY, TOP UD, SPRAY
     Dates: start: 20120808
  3. LIPITOR [Concomitant]
     Dosage: 5 MG, QD, 1/2 OF 10 MG TABLET
     Route: 048
  4. PALAFER [Concomitant]
     Indication: ABDOMINAL DISCOMFORT
     Dosage: 300 MG, BID
     Route: 048
     Dates: start: 20130225
  5. FERRLECIT                          /00023541/ [Concomitant]
     Dosage: 62.5 MG, QWK
     Route: 042
     Dates: start: 20130726
  6. CALCIUM CARBONATE [Concomitant]
     Dosage: 1250 MG, CC
     Route: 048
     Dates: start: 20120827
  7. TUMS EX [Concomitant]
     Indication: DIALYSIS
     Dosage: 750 MG, AS NECESSARY, QD, PRN
     Route: 048
     Dates: start: 20130306
  8. TUMS EX [Concomitant]
     Indication: DYSPEPSIA
  9. ROCALTROL [Concomitant]
     Dosage: 0.25 MUG, QD
     Route: 048
     Dates: start: 20120827
  10. VITAMIN D2 [Concomitant]
     Dosage: 50000 UNIT, QMO
     Route: 048
     Dates: start: 20081129
  11. COUMADIN                           /00014802/ [Concomitant]
     Dosage: 0 MG, QD
     Route: 048
     Dates: start: 20100219
  12. ACETAMINOPHEN [Concomitant]
     Indication: ARTHRITIS
     Dosage: 650 MG, Q6H, PRN
     Route: 048
     Dates: start: 20120319
  13. RANITIDINE [Concomitant]
     Dosage: UNK UNK, QHS
     Route: 048
     Dates: start: 20081101
  14. RANITIDINE [Concomitant]
     Dosage: 150 MG, QHS
     Route: 048
     Dates: start: 20131213
  15. REPLAVITE                          /00058902/ [Concomitant]
     Dosage: UNK UNK, QD
     Route: 048
     Dates: start: 20060310

REACTIONS (4)
  - Anaemia [Not Recovered/Not Resolved]
  - Plasma cell myeloma [Unknown]
  - Aplasia pure red cell [Not Recovered/Not Resolved]
  - Therapeutic response decreased [Unknown]
